FAERS Safety Report 8776292 (Version 2)
Quarter: 2013Q1

REPORT INFORMATION
  Report Type: Spontaneous
  Country: US (occurrence: US)
  Receive Date: 20120910
  Receipt Date: 20130225
  Transmission Date: 20140127
  Serious: Yes (Death, Other)
  Sender: FDA-Public Use
  Company Number: US-BAXTER-2012BAX016296

PATIENT
  Sex: Male

DRUGS (1)
  1. DIANEAL LOW CALCIUM [Suspect]
     Indication: PERITONEAL DIALYSIS
     Route: 033

REACTIONS (6)
  - Cardiac failure congestive [Fatal]
  - Arteriosclerosis coronary artery [Unknown]
  - Endocardial fibrosis [Unknown]
  - Cardiac valve disease [Unknown]
  - Myocardial infarction [Unknown]
  - Vomiting [Unknown]
